FAERS Safety Report 5858986-4 (Version None)
Quarter: 2008Q3

REPORT INFORMATION
  Report Type: 
  Country: None (occurrence: None)
  Receive Date: 20080825
  Receipt Date: 20080817
  Transmission Date: 20090109
  Serious: Yes (Hospitalization)
  Sender: FDA-Public Use
  Company Number: 430063J08USA

PATIENT
  Age: 43 Year
  Sex: Female

DRUGS (4)
  1. NOVANTRONE [Suspect]
     Indication: MULTIPLE SCLEROSIS
  2. AVONEX [Concomitant]
  3. AVALIDE (KARVEA HCT) [Concomitant]
  4. LEVOXYL (LEVOTHYROXONE SODIUM) [Concomitant]

REACTIONS (1)
  - CHEST PAIN [None]
